FAERS Safety Report 8348038-6 (Version None)
Quarter: 2012Q2

REPORT INFORMATION
  Report Type: 
  Country: None (occurrence: None)
  Receive Date: 20120509
  Receipt Date: 20120430
  Transmission Date: 20120825
  Serious: Yes (Other)
  Sender: FDA-Public Use
  Company Number: DE-JNJFOC-20120503510

PATIENT
  Sex: Male

DRUGS (6)
  1. XARELTO [Suspect]
     Route: 048
     Dates: start: 20120130
  2. XARELTO [Suspect]
     Route: 048
     Dates: start: 20120201
  3. XARELTO [Suspect]
     Route: 048
     Dates: start: 20120129, end: 20120129
  4. XARELTO [Suspect]
     Route: 048
     Dates: start: 20120201
  5. XARELTO [Suspect]
     Indication: LOWER LIMB FRACTURE
     Route: 048
     Dates: start: 20120129, end: 20120129
  6. XARELTO [Suspect]
     Indication: THROMBOSIS PROPHYLAXIS
     Route: 048
     Dates: start: 20120130

REACTIONS (2)
  - THROMBOSIS [None]
  - FRACTURE NONUNION [None]
